FAERS Safety Report 15145784 (Version 1)
Quarter: 2018Q3

REPORT INFORMATION
  Report Type: Spontaneous
  Country: IT (occurrence: IT)
  Receive Date: 20180714
  Receipt Date: 20180714
  Transmission Date: 20181010
  Serious: Yes (Hospitalization)
  Sender: FDA-Public Use
  Company Number: IT-TEVA-2018-DE-925779

PATIENT
  Age: 84 Year
  Sex: Male

DRUGS (4)
  1. TORASEMIDE [Suspect]
     Active Substance: TORSEMIDE
     Indication: OEDEMA PERIPHERAL
     Dosage: BIS ZU 4 TABLETTEN PRO TAG EMPFOHLEN
     Route: 065
  2. TORASEMIDE [Suspect]
     Active Substance: TORSEMIDE
     Indication: PULMONARY OEDEMA
  3. DIGIMERCK [Concomitant]
     Active Substance: DIGITOXIN
  4. ASPIRIN. [Suspect]
     Active Substance: ASPIRIN
     Dosage: EINNAHME SEIT 40 JAHREN NACH US?VORGABE (80MG)
     Route: 048

REACTIONS (4)
  - Drug ineffective [Unknown]
  - Constipation [Recovered/Resolved]
  - Flatulence [Recovered/Resolved]
  - Umbilical hernia [Recovered/Resolved]
